FAERS Safety Report 9921623 (Version 2)
Quarter: 2014Q2

REPORT INFORMATION
  Report Type: Spontaneous
  Country: US (occurrence: US)
  Receive Date: 20140225
  Receipt Date: 20140415
  Transmission Date: 20141212
  Serious: No
  Sender: FDA-Public Use
  Company Number: US-PFIZER INC-2014051411

PATIENT
  Age: 74 Year
  Sex: Male

DRUGS (4)
  1. SUTENT [Suspect]
     Indication: PROSTATE CANCER
     Dosage: 50 MG, UNK
     Dates: start: 20140203
  2. PRAVASTATIN SODIUM [Concomitant]
     Dosage: UNK
  3. COUMADIN [Concomitant]
     Dosage: UNK
  4. AMLODIPINE BESILATE/BENAZEPRIL HYDROCHLORIDE [Concomitant]
     Dosage: UNK

REACTIONS (3)
  - Back pain [Unknown]
  - Off label use [Unknown]
  - Blood creatinine increased [Unknown]
